FAERS Safety Report 7718275-X (Version None)
Quarter: 2011Q3

REPORT INFORMATION
  Report Type: 
  Country: None (occurrence: None)
  Receive Date: 20110830
  Receipt Date: 20110825
  Transmission Date: 20111222
  Serious: Yes (Life-Threatening)
  Sender: FDA-Public Use
  Company Number: FR-ROCHE-799046

PATIENT
  Sex: Female

DRUGS (9)
  1. CLONAZEPAM [Suspect]
     Dosage: REPORTED AS DAILY, 2.5 MG/ML
     Route: 048
     Dates: start: 20110712, end: 20110712
  2. OXAZEPAM [Suspect]
     Route: 048
     Dates: start: 20110601, end: 20110721
  3. CLOZAPINE [Suspect]
     Dosage: DAILY
     Route: 048
     Dates: start: 20110301, end: 20110719
  4. LEVOTHYROXINE SODIUM [Concomitant]
     Dosage: 1 DOSE IN THE MORNING
  5. MOVIPREP [Concomitant]
  6. ACETAMINOPHEN [Concomitant]
  7. SINEMET [Concomitant]
     Dosage: REPORTED AS SINEMET LP 25 MG/100 MG
     Route: 048
     Dates: start: 20110624
  8. MIRTAZAPINE [Concomitant]
     Dosage: DAILY, REPORTED AS 15 MG/ML ORAL
     Route: 048
  9. CLONAZEPAM [Suspect]
     Dosage: REPORTED AS DAILY, 2.5 MG/ML
     Route: 048
     Dates: start: 20110713, end: 20110719

REACTIONS (1)
  - CARDIO-RESPIRATORY ARREST [None]
